FAERS Safety Report 7525228-3 (Version None)
Quarter: 2011Q2

REPORT INFORMATION
  Report Type: 
  Country: None (occurrence: None)
  Receive Date: 20110602
  Receipt Date: 20110602
  Transmission Date: 20111010
  Serious: Yes (Hospitalization)
  Sender: FDA-Public Use
  Company Number: None

PATIENT
  Age: 60 Year
  Sex: Female
  Weight: 50 kg

DRUGS (18)
  1. ASPIRIN [Concomitant]
  2. PREDNISONE [Concomitant]
  3. DARVOCET [Concomitant]
  4. LOVAZA [Concomitant]
  5. CLOPIDOGREL [Concomitant]
  6. ATORVASTATIN [Concomitant]
  7. ESCITALOPRAM [Concomitant]
  8. FENOFIBRATE [Concomitant]
  9. QUETIAPINE [Concomitant]
  10. TIOTROPIUM [Concomitant]
  11. AZITHROMYCIN [Concomitant]
  12. ADVAIR DISKUS 100/50 [Concomitant]
  13. HYDROXYZINE [Concomitant]
  14. CYCLOSPORINE [Suspect]
     Indication: PSORIASIS
     Dosage: 200 MG Q12H PO (DATES OF USE: UNKNOWN; SHORT TERM)
     Route: 048
  15. ALBUTEROL SULFATE AUTOHALER [Concomitant]
  16. LORAZEPAM [Concomitant]
  17. TRAZODONE HCL [Concomitant]
  18. METOPROLOL [Concomitant]

REACTIONS (3)
  - GRAND MAL CONVULSION [None]
  - DYSKINESIA [None]
  - POSTERIOR REVERSIBLE ENCEPHALOPATHY SYNDROME [None]
